FAERS Safety Report 13406230 (Version 1)
Quarter: 2017Q2

REPORT INFORMATION
  Report Type: Spontaneous
  Country: US (occurrence: US)
  Receive Date: 20170405
  Receipt Date: 20170405
  Transmission Date: 20170830
  Serious: No
  Sender: FDA-Public Use
  Company Number: US-HORIZON-ACT-0069-2017

PATIENT
  Age: 42 Year
  Sex: Female

DRUGS (1)
  1. ACTIMMUNE [Suspect]
     Active Substance: INTERFERON GAMMA-1B
     Indication: CHRONIC GRANULOMATOUS DISEASE
     Dosage: 50 MCG TIW
     Dates: start: 20160310

REACTIONS (1)
  - Influenza like illness [Unknown]

NARRATIVE: CASE EVENT DATE: 20170325
